FAERS Safety Report 5141978-0 (Version None)
Quarter: 2006Q4

REPORT INFORMATION
  Report Type: 
  Country: None (occurrence: None)
  Receive Date: 20061102
  Receipt Date: 20061025
  Transmission Date: 20070319
  Serious: Yes (Death)
  Sender: FDA-Public Use
  Company Number: TH-BOEHRINGER INGELHEIM PHARMACEUTICALS, INC.-2006-DE-05652GD

PATIENT

DRUGS (5)
  1. NEVIRAPINE [Suspect]
     Indication: HIV INFECTION
  2. ANTI-HIV AGENTS [Suspect]
     Indication: HIV INFECTION
  3. CO-TRIMOXAZOLE [Suspect]
     Indication: ANTIFUNGAL PROPHYLAXIS
  4. ANTITUBERCULAR AGENTS [Suspect]
     Indication: LYMPH NODE TUBERCULOSIS
  5. ANTITUBERCULAR AGENTS [Suspect]
     Indication: LYMPHADENITIS

REACTIONS (1)
  - ENCEPHALITIS CYTOMEGALOVIRUS [None]
